FAERS Safety Report 14745379 (Version 1)
Quarter: 2018Q2

REPORT INFORMATION
  Report Type: Spontaneous
  Country: US (occurrence: US)
  Receive Date: 20180405
  Receipt Date: 20180405
  Transmission Date: 20180711
  Serious: Yes (Hospitalization)
  Sender: FDA-Public Use
  Company Number: None

PATIENT
  Age: 75 Year
  Sex: Male

DRUGS (1)
  1. BUMETANIDE. [Suspect]
     Active Substance: BUMETANIDE
     Indication: CARDIAC FAILURE CONGESTIVE
     Route: 048
     Dates: start: 20170626, end: 20180327

REACTIONS (7)
  - Dyspnoea [None]
  - Loss of personal independence in daily activities [None]
  - Dyspnoea paroxysmal nocturnal [None]
  - Fluid overload [None]
  - Dyspnoea exertional [None]
  - Peripheral swelling [None]
  - Cardiac failure [None]

NARRATIVE: CASE EVENT DATE: 20180320
